FAERS Safety Report 22124383 (Version 1)
Quarter: 2023Q1

REPORT INFORMATION
  Report Type: Spontaneous
  Country: US (occurrence: None)
  Receive Date: 20230321
  Receipt Date: 20230321
  Transmission Date: 20230418
  Serious: Yes (Hospitalization)
  Sender: FDA-Public Use
  Company Number: None

PATIENT
  Age: 84 Year
  Sex: Female
  Weight: 57.7 kg

DRUGS (1)
  1. ELIQUIS [Suspect]
     Active Substance: APIXABAN

REACTIONS (7)
  - Thalamic infarction [None]
  - Cerebral haemorrhage [None]
  - Blood pressure systolic increased [None]
  - Basal ganglia haemorrhage [None]
  - White blood cell count increased [None]
  - Gangrene [None]
  - Peripheral vascular disorder [None]

NARRATIVE: CASE EVENT DATE: 20221214
